FAERS Safety Report 10287462 (Version 1)
Quarter: 2014Q3

REPORT INFORMATION
  Report Type: Spontaneous
  Country: US (occurrence: US)
  Receive Date: 20140709
  Receipt Date: 20140709
  Transmission Date: 20150326
  Serious: Yes (Other)
  Sender: FDA-Public Use
  Company Number: US-GLAXOSMITHKLINE-A1080238A

PATIENT
  Sex: Male

DRUGS (1)
  1. WELLBUTRIN [Suspect]
     Active Substance: BUPROPION HYDROCHLORIDE
     Indication: EX-TOBACCO USER
     Route: 065
     Dates: start: 1999

REACTIONS (5)
  - Convulsion [Unknown]
  - Disturbance in attention [Unknown]
  - Mental impairment [Unknown]
  - Loss of consciousness [Unknown]
  - Eye movement disorder [Unknown]

NARRATIVE: CASE EVENT DATE: 1999
